FAERS Safety Report 25636558 (Version 4)
Quarter: 2025Q3

REPORT INFORMATION
  Report Type: Report from Study
  Country: US (occurrence: US)
  Receive Date: 20250804
  Receipt Date: 20250823
  Transmission Date: 20251021
  Serious: Yes (Other)
  Sender: AMGEN
  Company Number: US-AMGEN-USASP2025151889

PATIENT
  Age: 48 Year
  Sex: Female

DRUGS (4)
  1. TEPEZZA [Suspect]
     Active Substance: TEPROTUMUMAB-TRBW
     Indication: Toxic goitre
     Route: 040
     Dates: start: 20250617
  2. TEPEZZA [Suspect]
     Active Substance: TEPROTUMUMAB-TRBW
     Indication: Endocrine ophthalmopathy
     Dosage: 20 MILLIGRAM/KILOGRAM, Q3WK (SECOND INFUSION)
     Route: 040
     Dates: start: 2025
  3. TEPEZZA [Suspect]
     Active Substance: TEPROTUMUMAB-TRBW
     Dosage: 20 MILLIGRAM/KILOGRAM, Q3WK (THIRD INFUSION)
     Route: 040
     Dates: start: 2025
  4. TEPEZZA [Suspect]
     Active Substance: TEPROTUMUMAB-TRBW
     Dosage: 20 MILLIGRAM/KILOGRAM, Q3WK (UNKNOWN INFUSION)
     Route: 040
     Dates: start: 2025

REACTIONS (7)
  - Diarrhoea haemorrhagic [Recovering/Resolving]
  - Tinnitus [Not Recovered/Not Resolved]
  - Nausea [Recovering/Resolving]
  - Hypoacusis [Unknown]
  - Dry eye [Unknown]
  - Thirst [Unknown]
  - Sleep disorder [Unknown]

NARRATIVE: CASE EVENT DATE: 20250101
